FAERS Safety Report 20467031 (Version 1)
Quarter: 2022Q1

REPORT INFORMATION
  Report Type: Spontaneous
  Country: US (occurrence: US)
  Receive Date: 20220214
  Receipt Date: 20220214
  Transmission Date: 20220423
  Serious: Yes (Other)
  Sender: FDA-Public Use
  Company Number: US-BoehringerIngelheim-2022-BI-153600

PATIENT
  Sex: Male

DRUGS (1)
  1. OFEV [Suspect]
     Active Substance: NINTEDANIB
     Indication: Product used for unknown indication
     Route: 065

REACTIONS (6)
  - Terminal state [Unknown]
  - Dyspnoea [Unknown]
  - Feeling abnormal [Unknown]
  - Asthenia [Unknown]
  - Depression [Unknown]
  - Helplessness [Unknown]
